FAERS Safety Report 19151055 (Version 2)
Quarter: 2021Q2

REPORT INFORMATION
  Report Type: Spontaneous
  Country: CA (occurrence: CA)
  Receive Date: 20210419
  Receipt Date: 20210423
  Transmission Date: 20210717
  Serious: Yes (Life-Threatening, Hospitalization)
  Sender: FDA-Public Use
  Company Number: CA-TEVA-2021-CA-1900755

PATIENT
  Age: 51 Year
  Sex: Male

DRUGS (11)
  1. COVERSYL [Concomitant]
     Active Substance: PERINDOPRIL
  2. CRESTOR [Concomitant]
     Active Substance: ROSUVASTATIN CALCIUM
  3. JARDIANCE [Concomitant]
     Active Substance: EMPAGLIFLOZIN
  4. OXYNEO [Concomitant]
     Active Substance: OXYCODONE
  5. MONOCOR ?(5MG) [Concomitant]
  6. METFORMIN [Suspect]
     Active Substance: METFORMIN HYDROCHLORIDE
     Indication: TYPE 2 DIABETES MELLITUS
     Dosage: 1700 MILLIGRAM DAILY;
  7. LYRICA [Concomitant]
     Active Substance: PREGABALIN
  8. DIAMICRON [Concomitant]
     Active Substance: GLICLAZIDE
  9. LEVITRA [Concomitant]
     Active Substance: VARDENAFIL HYDROCHLORIDE
  10. VENTOLIN [Concomitant]
     Active Substance: ALBUTEROL SULFATE
     Route: 055
  11. LOZIDE [Concomitant]
     Active Substance: INDAPAMIDE

REACTIONS (2)
  - Lactic acidosis [Recovered/Resolved]
  - Diabetic ketoacidosis [Recovered/Resolved]
